FAERS Safety Report 5136894-4 (Version None)
Quarter: 2006Q4

REPORT INFORMATION
  Report Type: 
  Country: None (occurrence: None)
  Receive Date: 20061023
  Receipt Date: 20061010
  Transmission Date: 20070319
  Serious: Yes (Life-Threatening, Hospitalization)
  Sender: FDA-Public Use
  Company Number: 2006125617

PATIENT
  Sex: Female

DRUGS (1)
  1. LYRICA [Suspect]
     Indication: NEURALGIA
     Dosage: (75 MG), ORAL
     Route: 048
     Dates: start: 20061010, end: 20061010

REACTIONS (2)
  - DEHYDRATION [None]
  - VOMITING [None]
